FAERS Safety Report 6027639-4 (Version None)
Quarter: 2009Q1

REPORT INFORMATION
  Report Type: 
  Country: None (occurrence: None)
  Receive Date: 20090105
  Receipt Date: 20080707
  Transmission Date: 20090719
  Serious: No
  Sender: FDA-Public Use
  Company Number: US-BAYER-200812989BCC

PATIENT
  Age: 79 Year
  Sex: Female
  Weight: 71 kg

DRUGS (8)
  1. ALEVE (CAPLET) [Suspect]
     Indication: BONE PAIN
     Dosage: TOTAL DAILY DOSE: 880 MG  UNIT DOSE: 220 MG
     Route: 048
     Dates: start: 20080626
  2. COUMADIN [Concomitant]
     Dosage: TOTAL DAILY DOSE: 4 MG  UNIT DOSE: 1 MG
  3. VICODIN [Concomitant]
  4. TRAMADOL HYDROCHLORIDE [Concomitant]
     Dosage: UNIT DOSE: 15 MG
  5. METOPROLOL [Concomitant]
  6. LISINOPRIL [Concomitant]
  7. NITROGLYCERIN [Concomitant]
  8. VITAMIN D [Concomitant]

REACTIONS (2)
  - HAEMATOMA [None]
  - PAIN IN EXTREMITY [None]
